FAERS Safety Report 15735163 (Version 1)
Quarter: 2018Q4

REPORT INFORMATION
  Report Type: Spontaneous
  Country: US (occurrence: US)
  Receive Date: 20181218
  Receipt Date: 20181218
  Transmission Date: 20190205
  Serious: Yes (Hospitalization)
  Sender: FDA-Public Use
  Company Number: US-ORPHAN EUROPE-2060303

PATIENT
  Age: 11 Year
  Sex: Male

DRUGS (2)
  1. CYSTADANE [Suspect]
     Active Substance: BETAINE
     Indication: PRODUCT USED FOR UNKNOWN INDICATION
     Route: 048
     Dates: end: 20181126
  2. CYSTADANE [Suspect]
     Active Substance: BETAINE
     Route: 048
     Dates: start: 20181129

REACTIONS (2)
  - Appendicitis [Unknown]
  - Product dose omission [Recovered/Resolved]

NARRATIVE: CASE EVENT DATE: 20181126
